FAERS Safety Report 7725503-3 (Version None)
Quarter: 2011Q3

REPORT INFORMATION
  Report Type: 
  Country: None (occurrence: None)
  Receive Date: 20110902
  Receipt Date: 20110607
  Transmission Date: 20111222
  Serious: No
  Sender: FDA-Public Use
  Company Number: US-BRISTOL-MYERS SQUIBB COMPANY-15810039

PATIENT

DRUGS (1)
  1. KOMBIGLYZE XR [Suspect]
     Dosage: 1DF: 1PILL

REACTIONS (1)
  - RASH [None]
